FAERS Safety Report 8502072-1 (Version None)
Quarter: 2012Q3

REPORT INFORMATION
  Report Type: 
  Country: None (occurrence: None)
  Receive Date: 20120711
  Receipt Date: 20120622
  Transmission Date: 20120928
  Serious: Yes (Hospitalization)
  Sender: FDA-Public Use
  Company Number: CA-JNJFOC-20120612031

PATIENT
  Sex: Female

DRUGS (3)
  1. REMICADE [Suspect]
     Indication: CROHN'S DISEASE
     Route: 042
     Dates: start: 20110816
  2. REMICADE [Suspect]
     Dosage: DOUBLE DOSE
     Route: 042
     Dates: start: 20120606
  3. PREDNISONE [Concomitant]
     Route: 065

REACTIONS (2)
  - CROHN'S DISEASE [None]
  - CLOSTRIDIAL INFECTION [None]
